FAERS Safety Report 4827756-8 (Version None)
Quarter: 2005Q4

REPORT INFORMATION
  Report Type: 
  Country: None (occurrence: None)
  Receive Date: 20051110
  Receipt Date: 20051028
  Transmission Date: 20060501
  Serious: Yes (Other)
  Sender: FDA-Public Use
  Company Number: 22031

PATIENT

DRUGS (2)
  1. PROCHLORPERAZINE [Suspect]
  2. HALOPERIDOL LACTATE [Suspect]

REACTIONS (1)
  - MEDICATION ERROR [None]
